FAERS Safety Report 26012143 (Version 1)
Quarter: 2025Q4

REPORT INFORMATION
  Report Type: Spontaneous
  Country: US (occurrence: US)
  Receive Date: 20251107
  Receipt Date: 20251107
  Transmission Date: 20260118
  Serious: Yes (Other)
  Sender: AMGEN
  Company Number: US-AMGEN-USASP2025215565

PATIENT
  Age: 52 Year
  Sex: Female

DRUGS (6)
  1. PREDNISONE [Suspect]
     Active Substance: PREDNISONE
     Indication: Pemphigus
     Dosage: UNK
     Route: 065
  2. RITUXIMAB [Suspect]
     Active Substance: RITUXIMAB
     Indication: Pemphigus
     Dosage: UNK
     Route: 065
  3. MYCOPHENOLATE MOFETIL [Concomitant]
     Active Substance: MYCOPHENOLATE MOFETIL
     Indication: Pemphigus
     Dosage: 1 GRAM, BID
  4. MYCOPHENOLATE MOFETIL [Concomitant]
     Active Substance: MYCOPHENOLATE MOFETIL
     Indication: Autoimmune blistering disease
  5. HUMAN IMMUNOGLOBULIN G [Concomitant]
     Active Substance: HUMAN IMMUNOGLOBULIN G
     Indication: Pemphigus
     Route: 040
  6. FLUOCINONIDE [Concomitant]
     Active Substance: FLUOCINONIDE
     Indication: Pemphigus
     Dosage: UNK UNK, 5 TIMES/WK, (TWICE DAILY)
     Route: 061

REACTIONS (2)
  - Acanthoma [Recovered/Resolved]
  - Off label use [Unknown]
